FAERS Safety Report 6791432-5 (Version None)
Quarter: 2010Q2

REPORT INFORMATION
  Report Type: 
  Country: None (occurrence: None)
  Receive Date: 20100624
  Receipt Date: 20080714
  Transmission Date: 20101027
  Serious: No
  Sender: FDA-Public Use
  Company Number: US-PFIZER INC-2008057262

PATIENT
  Sex: Female
  Weight: 90.5 kg

DRUGS (5)
  1. AROMASIN [Suspect]
     Indication: BREAST CANCER
     Dates: start: 20080625
  2. IBUPROFEN [Concomitant]
     Indication: HEADACHE
  3. NEXIUM [Concomitant]
  4. LEXAPRO [Concomitant]
  5. SYNTHROID [Concomitant]

REACTIONS (1)
  - DRUG INEFFECTIVE [None]
